FAERS Safety Report 6932855-0 (Version None)
Quarter: 2010Q3

REPORT INFORMATION
  Report Type: 
  Country: None (occurrence: None)
  Receive Date: 20100819
  Receipt Date: 20100809
  Transmission Date: 20110219
  Serious: Yes (Hospitalization)
  Sender: FDA-Public Use
  Company Number: CH-WATSON-2010-10962

PATIENT
  Age: 29 Year
  Sex: Male

DRUGS (3)
  1. ERGOTAMINE [Suspect]
     Indication: MIGRAINE
     Dosage: 1 MG, DAILY
     Route: 048
  2. EMTRICITABINE W/TENOFOVIR [Suspect]
     Indication: HIV INFECTION
     Dosage: UNK
  3. LOPINAVIR AND RITONAVIR [Suspect]
     Indication: HIV INFECTION
     Dosage: UNK

REACTIONS (2)
  - ERGOT POISONING [None]
  - INHIBITORY DRUG INTERACTION [None]
